FAERS Safety Report 11470739 (Version 2)
Quarter: 2015Q3

REPORT INFORMATION
  Report Type: Spontaneous
  Country: US (occurrence: US)
  Receive Date: 20150903
  Receipt Date: 20150903
  Transmission Date: 20151125
  Serious: No
  Sender: FDA-Public Use
  Company Number: US-ELI_LILLY_AND_COMPANY-US201110000916

PATIENT
  Age: 32 Year
  Sex: Female
  Weight: 55.33 kg

DRUGS (2)
  1. CYMBALTA [Suspect]
     Active Substance: DULOXETINE HYDROCHLORIDE
     Indication: PAIN
     Dosage: 20 MG, QD
     Route: 048
     Dates: start: 20110812
  2. XANAX [Concomitant]
     Active Substance: ALPRAZOLAM

REACTIONS (6)
  - Alopecia [Unknown]
  - Unevaluable event [Unknown]
  - Confusional state [Unknown]
  - Hyperhidrosis [Unknown]
  - Vision blurred [Unknown]
  - Off label use [Unknown]

NARRATIVE: CASE EVENT DATE: 201108
